FAERS Safety Report 9349239 (Version 1)
Quarter: 2013Q2

REPORT INFORMATION
  Report Type: Spontaneous
  Country: SE (occurrence: SE)
  Receive Date: 20130614
  Receipt Date: 20130614
  Transmission Date: 20140414
  Serious: Yes (Life-Threatening, Hospitalization)
  Sender: FDA-Public Use
  Company Number: SE-BRISTOL-MYERS SQUIBB COMPANY-18994434

PATIENT
  Age: 45 Year
  Sex: Female

DRUGS (8)
  1. ABILIFY TABS 5 MG [Suspect]
     Route: 065
     Dates: start: 20090505, end: 201207
  2. ZOLPIDEM [Suspect]
     Dosage: HIGHEST DOSE
     Route: 065
     Dates: start: 20090505, end: 201207
  3. SERTRALINE [Suspect]
     Dosage: HIGHEST DOSE
     Route: 065
     Dates: start: 20090505, end: 201207
  4. MIRTAZAPINE [Suspect]
     Dosage: HIGHEST DOSE
     Route: 065
     Dates: start: 20090505, end: 201207
  5. PROPAVAN [Suspect]
     Dosage: TABS
     Route: 065
     Dates: start: 20090505, end: 201207
  6. NOZINAN [Suspect]
     Dosage: TABS
     Route: 065
     Dates: start: 20090505, end: 201207
  7. CODEINE [Suspect]
     Dosage: HIGHEST DOSE
     Route: 065
     Dates: start: 20090505, end: 201207
  8. ZYPREXA [Suspect]
     Dosage: TABS
     Route: 065
     Dates: start: 20090505, end: 201207

REACTIONS (3)
  - Brain injury [Not Recovered/Not Resolved]
  - Blood pressure fluctuation [Not Recovered/Not Resolved]
  - Weight increased [Not Recovered/Not Resolved]
